FAERS Safety Report 8832092 (Version 2)
Quarter: 2013Q1

REPORT INFORMATION
  Report Type: Report from Study
  Country: DE (occurrence: DE)
  Receive Date: 20121009
  Receipt Date: 20130114
  Transmission Date: 20140127
  Serious: Yes (Hospitalization)
  Sender: FDA-Public Use
  Company Number: DE-ROCHE-1142314

PATIENT
  Sex: Female
  Weight: 82 kg

DRUGS (8)
  1. TRASTUZUMAB [Suspect]
     Indication: BREAST CANCER METASTATIC
     Route: 042
     Dates: start: 20110726
  2. TRASTUZUMAB [Suspect]
     Route: 042
  3. FORTECORTIN [Suspect]
     Indication: PROPHYLAXIS OF NAUSEA AND VOMITING
     Route: 065
     Dates: start: 20110727
  4. FENISTIL [Suspect]
     Indication: PROPHYLAXIS OF NAUSEA AND VOMITING
     Route: 065
     Dates: start: 20110727
  5. RANITIC [Suspect]
     Indication: PROPHYLAXIS OF NAUSEA AND VOMITING
     Route: 065
     Dates: start: 20110727
  6. KEVATRIL [Suspect]
     Indication: PROPHYLAXIS OF NAUSEA AND VOMITING
     Route: 065
     Dates: start: 20110727
  7. DOCETAXEL [Suspect]
     Indication: BREAST CANCER METASTATIC
     Route: 042
     Dates: start: 20110727
  8. DOCETAXEL [Suspect]
     Route: 042

REACTIONS (2)
  - Febrile neutropenia [Recovered/Resolved]
  - Stomatitis [Recovered/Resolved]
